FAERS Safety Report 18797850 (Version 3)
Quarter: 2021Q2

REPORT INFORMATION
  Report Type: Spontaneous
  Country: AE (occurrence: AE)
  Receive Date: 20210128
  Receipt Date: 20210507
  Transmission Date: 20210717
  Serious: Yes (Other)
  Sender: FDA-Public Use
  Company Number: AE-SA-2021SA025068

PATIENT
  Sex: Female

DRUGS (2)
  1. LEMTRADA [Suspect]
     Active Substance: ALEMTUZUMAB
     Dosage: 12 MG, QD
     Route: 042
     Dates: start: 20200615, end: 20200617
  2. LEMTRADA [Suspect]
     Active Substance: ALEMTUZUMAB
     Indication: MULTIPLE SCLEROSIS
     Dosage: UNK
     Dates: start: 2019

REACTIONS (3)
  - Abdominal pain [Unknown]
  - Autoimmune pancreatitis [Not Recovered/Not Resolved]
  - Steatorrhoea [Unknown]

NARRATIVE: CASE EVENT DATE: 2021
